FAERS Safety Report 7749804-8 (Version None)
Quarter: 2011Q3

REPORT INFORMATION
  Report Type: 
  Country: None (occurrence: None)
  Receive Date: 20110914
  Receipt Date: 20110912
  Transmission Date: 20111222
  Serious: No
  Sender: FDA-Public Use
  Company Number: US-PFIZER INC-2011215070

PATIENT
  Sex: Female
  Weight: 95 kg

DRUGS (1)
  1. SPIRONOLACTONE [Suspect]
     Indication: HYPERTENSION
     Dosage: 25 MG, 1X/DAY
     Route: 048
     Dates: start: 20110801, end: 20110911

REACTIONS (3)
  - PRODUCT TASTE ABNORMAL [None]
  - ABDOMINAL DISTENSION [None]
  - SCRATCH [None]
